FAERS Safety Report 20354482 (Version 1)
Quarter: 2022Q1

REPORT INFORMATION
  Report Type: Spontaneous
  Country: US (occurrence: US)
  Receive Date: 20220120
  Receipt Date: 20220120
  Transmission Date: 20220423
  Serious: No
  Sender: FDA-Public Use
  Company Number: US-ALLERGAN-2126451US

PATIENT
  Sex: Female

DRUGS (2)
  1. ALORA [Suspect]
     Active Substance: ESTRADIOL
     Indication: Product used for unknown indication
  2. ALORA [Suspect]
     Active Substance: ESTRADIOL

REACTIONS (3)
  - Constipation [Unknown]
  - Breast pain [Unknown]
  - Hot flush [Unknown]
